FAERS Safety Report 6094074-2 (Version None)
Quarter: 2009Q1

REPORT INFORMATION
  Report Type: 
  Country: None (occurrence: None)
  Receive Date: 20090219
  Receipt Date: 20081119
  Transmission Date: 20090719
  Serious: No
  Sender: FDA-Public Use
  Company Number: WAES 0811USA03021

PATIENT
  Age: 71 Year
  Sex: Female

DRUGS (2)
  1. JANUVIA [Suspect]
     Indication: TYPE 2 DIABETES MELLITUS
     Dosage: 100 MG/DAILY/PO
     Route: 048
  2. PRILOSEC [Concomitant]

REACTIONS (4)
  - ABDOMINAL DISCOMFORT [None]
  - ALOPECIA [None]
  - DIARRHOEA [None]
  - WEIGHT DECREASED [None]
